FAERS Safety Report 23021784 (Version 1)
Quarter: 2023Q4

REPORT INFORMATION
  Report Type: Spontaneous
  Country: AT (occurrence: AT)
  Receive Date: 20231003
  Receipt Date: 20231003
  Transmission Date: 20240110
  Serious: Yes (Other)
  Sender: FDA-Public Use
  Company Number: AT-002147023-NVSC2023AT189559

PATIENT
  Age: 51 Year
  Sex: Female

DRUGS (1)
  1. KESIMPTA [Suspect]
     Active Substance: OFATUMUMAB
     Indication: Secondary progressive multiple sclerosis
     Dosage: UNK (START DATE: 30 AUG)
     Route: 065
     Dates: end: 20230905

REACTIONS (5)
  - C-reactive protein increased [Recovered/Resolved]
  - Lymphocyte count increased [Recovered/Resolved]
  - White blood cell count increased [Recovered/Resolved]
  - Oropharyngeal pain [Recovered/Resolved]
  - Pharyngeal erythema [Unknown]

NARRATIVE: CASE EVENT DATE: 20230830
